FAERS Safety Report 9326176 (Version 1)
Quarter: 2013Q2

REPORT INFORMATION
  Report Type: Spontaneous
  Country: US (occurrence: None)
  Receive Date: 20130603
  Receipt Date: 20130603
  Transmission Date: 20140414
  Serious: Yes (Life-Threatening, Hospitalization)
  Sender: FDA-Public Use
  Company Number: None

PATIENT
  Age: 68 Year
  Sex: Male
  Weight: 114 kg

DRUGS (3)
  1. DALTEPARIN [Suspect]
     Indication: COAGULOPATHY
     Dates: start: 20130105, end: 20130221
  2. DALTEPARIN [Suspect]
     Indication: PROPHYLAXIS
     Dates: start: 20130105, end: 20130221
  3. HEPARIN [Suspect]
     Route: 042
     Dates: start: 20130115, end: 20130125

REACTIONS (2)
  - Heparin-induced thrombocytopenia test positive [None]
  - Acute monocytic leukaemia [None]
